FAERS Safety Report 4553423-4 (Version None)
Quarter: 2005Q1

REPORT INFORMATION
  Report Type: 
  Country: None (occurrence: None)
  Receive Date: 20050112
  Receipt Date: 20040505
  Transmission Date: 20050727
  Serious: Yes (Hospitalization)
  Sender: FDA-Public Use
  Company Number: 2004030089

PATIENT
  Age: 29 Year
  Sex: Female
  Weight: 69 kg

DRUGS (4)
  1. ZELDOX (CAPSULES) (ZIPRASIDONE) [Suspect]
     Indication: SCHIZOAFFECTIVE DISORDER
     Dosage: 140 MG (2 IN 1 D), ORAL
     Route: 048
     Dates: start: 20040114
  2. LORAZEPAM [Concomitant]
  3. LAMOTRIGINE [Concomitant]
  4. VALPROATE SODIUM [Concomitant]

REACTIONS (3)
  - AKATHISIA [None]
  - GALACTORRHOEA [None]
  - HYPERSOMNIA [None]
